FAERS Safety Report 17050344 (Version 1)
Quarter: 2019Q4

REPORT INFORMATION
  Report Type: Report from Study
  Country: None (occurrence: US)
  Receive Date: 20191119
  Receipt Date: 20191119
  Transmission Date: 20200122
  Serious: Yes (Other)
  Sender: FDA-Public Use
  Company Number: US-ABBVIE-19P-163-2948999-00

PATIENT
  Age: 54 Year
  Sex: Female

DRUGS (1)
  1. RINVOQ [Suspect]
     Active Substance: UPADACITINIB
     Indication: PRODUCT USED FOR UNKNOWN INDICATION
     Route: 048

REACTIONS (21)
  - Catheterisation cardiac [Unknown]
  - Sinusitis [Recovering/Resolving]
  - Cough [Recovering/Resolving]
  - Musculoskeletal stiffness [Recovering/Resolving]
  - Arthralgia [Recovering/Resolving]
  - Contusion [Not Recovered/Not Resolved]
  - Arthralgia [Unknown]
  - Catheter site bruise [Unknown]
  - Chest pain [Recovering/Resolving]
  - Kidney infection [Recovering/Resolving]
  - Joint stiffness [Not Recovered/Not Resolved]
  - Musculoskeletal pain [Unknown]
  - Back pain [Recovering/Resolving]
  - Pain in extremity [Recovering/Resolving]
  - Urinary tract infection [Unknown]
  - Catheter site nodule [Unknown]
  - Pain [Not Recovered/Not Resolved]
  - Heart rate irregular [Not Recovered/Not Resolved]
  - Joint stiffness [Unknown]
  - Musculoskeletal stiffness [Unknown]
  - Hypersensitivity [Recovering/Resolving]

NARRATIVE: CASE EVENT DATE: 20191104
